FAERS Safety Report 10439805 (Version 2)
Quarter: 2015Q3

REPORT INFORMATION
  Report Type: Report from Study
  Country: US (occurrence: US)
  Receive Date: 20140908
  Receipt Date: 20150717
  Transmission Date: 20151125
  Serious: Yes (Death, Other)
  Sender: FDA-Public Use
  Company Number: US-ASTELLAS-2014US011856

PATIENT
  Age: 55 Year
  Sex: Male

DRUGS (4)
  1. ERLOTINIB [Suspect]
     Active Substance: ERLOTINIB
     Indication: RECTAL CANCER
     Route: 048
     Dates: start: 20070802
  2. ERLOTINIB [Suspect]
     Active Substance: ERLOTINIB
     Indication: RECTOSIGMOID CANCER
  3. ERLOTINIB [Suspect]
     Active Substance: ERLOTINIB
     Indication: ANAL CANCER
  4. ERLOTINIB [Suspect]
     Active Substance: ERLOTINIB
     Indication: COLORECTAL CANCER

REACTIONS (5)
  - Metastases to lung [Unknown]
  - Death [Fatal]
  - Metastases to liver [Unknown]
  - Metastases to pelvis [Unknown]
  - Off label use [Unknown]

NARRATIVE: CASE EVENT DATE: 20070802
